FAERS Safety Report 7446411-1 (Version None)
Quarter: 2011Q2

REPORT INFORMATION
  Report Type: 
  Country: None (occurrence: None)
  Receive Date: 20110429
  Receipt Date: 20100928
  Transmission Date: 20111010
  Serious: No
  Sender: FDA-Public Use
  Company Number: US-ASTRAZENECA-2010SE40727

PATIENT
  Age: 64 Year
  Sex: Female
  Weight: 47.6 kg

DRUGS (4)
  1. VALIUM [Concomitant]
  2. NEXIUM [Suspect]
     Indication: GASTROOESOPHAGEAL REFLUX DISEASE
     Route: 048
     Dates: start: 20010101
  3. ZYRTEC [Concomitant]
  4. LOVASA [Concomitant]

REACTIONS (1)
  - VOCAL CORD DISORDER [None]
